FAERS Safety Report 5149941-0 (Version None)
Quarter: 2006Q4

REPORT INFORMATION
  Report Type: 
  Country: None (occurrence: None)
  Receive Date: 20061113
  Receipt Date: 20061026
  Transmission Date: 20070319
  Serious: Yes (Death)
  Sender: FDA-Public Use
  Company Number: FR-BOEHRINGER INGELHEIM GMBH, GERMANY-2006-FF-01181FF

PATIENT
  Sex: Male

DRUGS (1)
  1. APTIVUS [Suspect]
     Indication: HIV INFECTION
     Route: 048

REACTIONS (1)
  - DEATH [None]
